FAERS Safety Report 12369969 (Version 3)
Quarter: 2018Q1

REPORT INFORMATION
  Report Type: Report from Study
  Country: None (occurrence: GB)
  Receive Date: 20160516
  Receipt Date: 20180130
  Transmission Date: 20180508
  Serious: Yes (Death)
  Sender: FDA-Public Use
  Company Number: GB-ABBVIE-16K-167-1627733-00

PATIENT
  Age: 79 Year
  Sex: Female

DRUGS (1)
  1. HUMIRA [Suspect]
     Active Substance: ADALIMUMAB
     Indication: RHEUMATOID ARTHRITIS
     Route: 058
     Dates: start: 20070416, end: 20080805

REACTIONS (1)
  - Death [Fatal]

NARRATIVE: CASE EVENT DATE: 20151118
